FAERS Safety Report 7833686-X (Version None)
Quarter: 2011Q4

REPORT INFORMATION
  Report Type: 
  Country: None (occurrence: None)
  Receive Date: 20111024
  Receipt Date: 20111018
  Transmission Date: 20120403
  Serious: Yes (Life-Threatening, Hospitalization, Other)
  Sender: FDA-Public Use
  Company Number: US-ASTRAZENECA-2010SE10621

PATIENT
  Age: 82 Year
  Sex: Female

DRUGS (8)
  1. COUMADIN [Concomitant]
     Route: 048
  2. RESTORIL [Concomitant]
     Indication: SLEEP DISORDER
     Dosage: 15 MG  AT NIGHT PRN
     Route: 048
  3. MONOPRIL [Concomitant]
     Route: 048
  4. NIACIN [Concomitant]
  5. VITAMIN B COMPLEX CAP [Concomitant]
  6. TOPROL-XL [Suspect]
     Route: 048
  7. TRIAMTRERINE/HYDROCHLOROTHIAZIDE [Concomitant]
     Dosage: 37.5/25 MG DAILY
     Route: 048
  8. NORVASC [Concomitant]
     Route: 048

REACTIONS (14)
  - MYOCARDIAL INFARCTION [None]
  - CARDIOGENIC SHOCK [None]
  - CEREBROVASCULAR ACCIDENT [None]
  - LOSS OF CONSCIOUSNESS [None]
  - GASTROINTESTINAL HAEMORRHAGE [None]
  - ATRIAL SEPTAL DEFECT [None]
  - METABOLIC ACIDOSIS [None]
  - DEEP VEIN THROMBOSIS [None]
  - RENAL FAILURE [None]
  - METABOLIC ENCEPHALOPATHY [None]
  - HYPOKALAEMIA [None]
  - ACUTE RESPIRATORY FAILURE [None]
  - PULMONARY EMBOLISM [None]
  - HYPERTENSION [None]
